FAERS Safety Report 25320042 (Version 1)
Quarter: 2025Q2

REPORT INFORMATION
  Report Type: Spontaneous
  Country: US (occurrence: US)
  Receive Date: 20250515
  Receipt Date: 20250515
  Transmission Date: 20250717
  Serious: No
  Sender: AQUESTIVE THERAPEUTICS
  Company Number: US-AQUESTIVE THERAPEUTICS, INC.-2025AQU00010

PATIENT

DRUGS (1)
  1. LIBERVANT [Suspect]
     Active Substance: DIAZEPAM

REACTIONS (1)
  - Vomiting [Unknown]
